FAERS Safety Report 19061352 (Version 2)
Quarter: 2021Q2

REPORT INFORMATION
  Report Type: Spontaneous
  Country: JP (occurrence: JP)
  Receive Date: 20210326
  Receipt Date: 20210525
  Transmission Date: 20210717
  Serious: Yes (Hospitalization, Other)
  Sender: FDA-Public Use
  Company Number: NVSJ2020JP010003

PATIENT
  Age: 18 Year
  Sex: Male

DRUGS (11)
  1. MEROPEN [Concomitant]
     Active Substance: MEROPENEM
     Indication: PRODUCT USED FOR UNKNOWN INDICATION
     Dosage: 800 MG, TID
     Route: 041
  2. OMAPREN [Concomitant]
     Active Substance: OMEPRAZOLE
     Indication: PRODUCT USED FOR UNKNOWN INDICATION
     Dosage: 20 MG, BID
     Route: 041
  3. VORICONAZOLE. [Suspect]
     Active Substance: VORICONAZOLE
     Indication: PRODUCT USED FOR UNKNOWN INDICATION
     Dosage: UNK
     Route: 065
     Dates: start: 20201005, end: 20201014
  4. DAIPHEN [Concomitant]
     Active Substance: SULFAMETHOXAZOLE\TRIMETHOPRIM
     Indication: PRODUCT USED FOR UNKNOWN INDICATION
     Dosage: 2 DF, QW3,MONDAY, WEDNESDAY AND FRIDAY
     Route: 048
  5. KYMRIAH [Suspect]
     Active Substance: TISAGENLECLEUCEL
     Indication: ACUTE LYMPHOCYTIC LEUKAEMIA RECURRENT
     Dosage: UNK
     Route: 041
     Dates: start: 20200928, end: 20200928
  6. LASIX [Concomitant]
     Active Substance: FUROSEMIDE
     Indication: PRODUCT USED FOR UNKNOWN INDICATION
     Dosage: BID,40?20?0
     Route: 048
  7. VALACICLOVIR [Concomitant]
     Active Substance: VALACYCLOVIR HYDROCHLORIDE
     Indication: PRODUCT USED FOR UNKNOWN INDICATION
     Dosage: 500 MG, BID
     Route: 048
  8. VFEND [Concomitant]
     Active Substance: VORICONAZOLE
     Indication: PRODUCT USED FOR UNKNOWN INDICATION
     Dosage: 330 MG, BID
     Route: 041
  9. ALDACTONE A [Concomitant]
     Active Substance: SPIRONOLACTONE
     Indication: PRODUCT USED FOR UNKNOWN INDICATION
     Dosage: BID,50?25?0
     Route: 048
  10. PHOSRIBBON [Concomitant]
     Indication: PRODUCT USED FOR UNKNOWN INDICATION
     Dosage: 3 DF, TID
     Route: 048
  11. TEICOPLANIN [Concomitant]
     Active Substance: TEICOPLANIN
     Indication: PRODUCT USED FOR UNKNOWN INDICATION
     Dosage: 800 MG, QD
     Route: 041

REACTIONS (13)
  - Immune effector cell-associated neurotoxicity syndrome [Recovered/Resolved]
  - Reduced facial expression [Recovering/Resolving]
  - Acute lymphocytic leukaemia recurrent [Not Recovered/Not Resolved]
  - Disorientation [Unknown]
  - Speech disorder developmental [Recovering/Resolving]
  - Eating disorder [Unknown]
  - Cytokine release syndrome [Recovered/Resolved]
  - Pyrexia [Recovered/Resolved]
  - Regressive behaviour [Unknown]
  - Mental impairment [Unknown]
  - Drug level increased [Recovering/Resolving]
  - Delirium [Unknown]
  - Language disorder [Unknown]

NARRATIVE: CASE EVENT DATE: 20200929
